FAERS Safety Report 7917358-9 (Version None)
Quarter: 2011Q4

REPORT INFORMATION
  Report Type: 
  Country: None (occurrence: None)
  Receive Date: 20111116
  Receipt Date: 20111110
  Transmission Date: 20120403
  Serious: Yes (Death, Other)
  Sender: FDA-Public Use
  Company Number: PHHY2011CA30987

PATIENT
  Sex: Male

DRUGS (2)
  1. SANDOSTATIN LAR [Suspect]
     Indication: SMALL INTESTINE CARCINOMA
     Dosage: 60 MG, EVERY 4 WEEKS
     Route: 030
     Dates: start: 20070801
  2. SANDOSTATIN LAR [Suspect]
     Dosage: 60 MG, QMO
     Route: 030
     Dates: end: 20110922

REACTIONS (4)
  - DIARRHOEA [None]
  - DEATH [None]
  - INJECTION SITE PAIN [None]
  - NAUSEA [None]
